FAERS Safety Report 8371395-1 (Version None)
Quarter: 2012Q2

REPORT INFORMATION
  Report Type: 
  Country: None (occurrence: None)
  Receive Date: 20120518
  Receipt Date: 20120516
  Transmission Date: 20120825
  Serious: Yes (Other)
  Sender: FDA-Public Use
  Company Number: US-AMGEN-USASP2012029501

PATIENT
  Sex: Female

DRUGS (6)
  1. PROLIA [Suspect]
     Indication: OSTEOPOROSIS POSTMENOPAUSAL
     Dates: start: 20111019
  2. OXYCODONE HCL [Concomitant]
  3. CALCIUM [Concomitant]
  4. VITAMIN D [Concomitant]
  5. VITAMINS                           /00067501/ [Concomitant]
  6. FISH OIL [Concomitant]

REACTIONS (4)
  - PAIN IN JAW [None]
  - MUSCULAR WEAKNESS [None]
  - HYPOAESTHESIA [None]
  - PAIN IN EXTREMITY [None]
